FAERS Safety Report 11391413 (Version 1)
Quarter: 2015Q3

REPORT INFORMATION
  Report Type: Spontaneous
  Country: BR (occurrence: BR)
  Receive Date: 20150818
  Receipt Date: 20150818
  Transmission Date: 20151125
  Serious: Yes (Other)
  Sender: FDA-Public Use
  Company Number: BR-JNJFOC-20150810764

PATIENT
  Age: 19 Year
  Sex: Female

DRUGS (1)
  1. TYLEX [Suspect]
     Active Substance: ACETAMINOPHEN\CODEINE PHOSPHATE
     Indication: HEADACHE
     Route: 065

REACTIONS (6)
  - Dysarthria [Unknown]
  - Hypersomnia [Unknown]
  - Wheezing [Unknown]
  - Malaise [Unknown]
  - Pallor [Unknown]
  - Disturbance in social behaviour [Unknown]
